FAERS Safety Report 8295524-3 (Version None)
Quarter: 2012Q2

REPORT INFORMATION
  Report Type: 
  Country: None (occurrence: None)
  Receive Date: 20120418
  Receipt Date: 20120406
  Transmission Date: 20120825
  Serious: Yes (Other)
  Sender: FDA-Public Use
  Company Number: FR-ELI_LILLY_AND_COMPANY-FR201204004798

PATIENT
  Age: 40 Year
  Sex: Female

DRUGS (2)
  1. CYMBALTA [Suspect]
     Dosage: 30 MG, QD
     Route: 048
     Dates: end: 20120101
  2. PROZAC [Suspect]
     Dosage: 20 MG, QD
     Route: 048

REACTIONS (6)
  - WEIGHT INCREASED [None]
  - RECTAL HAEMORRHAGE [None]
  - COMPULSIVE SHOPPING [None]
  - HYPOMANIA [None]
  - INTESTINAL POLYP [None]
  - AGGRESSION [None]
